FAERS Safety Report 5182547-6 (Version None)
Quarter: 2006Q4

REPORT INFORMATION
  Report Type: 
  Country: None (occurrence: None)
  Receive Date: 20061220
  Receipt Date: 20061020
  Transmission Date: 20070319
  Serious: No
  Sender: FDA-Public Use
  Company Number: US-GLAXOSMITHKLINE-A0624349A

PATIENT
  Age: 70 Year
  Sex: Female
  Weight: 47 kg

DRUGS (2)
  1. COMMIT [Suspect]
     Dates: start: 20061017
  2. SEIZURE MEDICATION [Concomitant]

REACTIONS (1)
  - FLATULENCE [None]
